FAERS Safety Report 5511525-X (Version None)
Quarter: 2007Q4

REPORT INFORMATION
  Report Type: 
  Country: None (occurrence: None)
  Receive Date: 20071109
  Receipt Date: 20071108
  Transmission Date: 20080405
  Serious: Yes (Life-Threatening, Hospitalization, Other)
  Sender: FDA-Public Use
  Company Number: B0494524A

PATIENT
  Age: 75 Year
  Sex: Male
  Weight: 66 kg

DRUGS (18)
  1. LAMOTRIGINE [Suspect]
     Dosage: 100MG PER DAY
     Route: 048
     Dates: start: 20050601
  2. CLARITHROMYCIN [Suspect]
     Indication: INFECTION
     Dosage: 1000MG PER DAY
     Route: 048
     Dates: start: 20070913, end: 20070914
  3. ASPIRIN [Concomitant]
     Indication: ANTIPLATELET THERAPY
     Dosage: 75MG PER DAY
     Route: 048
     Dates: end: 20070906
  4. FUROSEMIDE [Concomitant]
     Indication: FLUID OVERLOAD
     Dosage: 80MG PER DAY
     Route: 048
     Dates: end: 20070902
  5. SIMVASTATIN [Concomitant]
     Indication: LIPIDS ABNORMAL
     Dosage: 40MG PER DAY
     Route: 048
  6. THEOPHYLLINE [Concomitant]
     Indication: CHRONIC OBSTRUCTIVE PULMONARY DISEASE
     Dosage: 350MG PER DAY
     Route: 048
  7. BECLAZONE [Concomitant]
     Indication: CHRONIC OBSTRUCTIVE PULMONARY DISEASE
     Dosage: 800MCG PER DAY
     Route: 055
  8. WARFARIN SODIUM [Concomitant]
     Indication: HEART VALVE REPLACEMENT
     Route: 048
     Dates: start: 20070904
  9. CO-AMILOFRUSE [Concomitant]
     Indication: FLUID OVERLOAD
     Route: 048
     Dates: start: 20070911, end: 20070918
  10. PARACETAMOL [Concomitant]
     Indication: PAIN MANAGEMENT
     Route: 048
     Dates: start: 20070911
  11. NICORANDIL [Concomitant]
     Route: 048
     Dates: start: 20070912, end: 20070913
  12. NICORANDIL [Concomitant]
     Route: 048
     Dates: start: 20070913
  13. CLEXANE [Concomitant]
     Route: 058
     Dates: start: 20070910, end: 20070911
  14. ADRENALINE [Concomitant]
     Route: 042
     Dates: start: 20070904, end: 20070908
  15. NORADRENALINE [Concomitant]
     Route: 042
     Dates: start: 20070904, end: 20070908
  16. DOPAMINE HCL [Concomitant]
     Route: 042
     Dates: start: 20070904, end: 20070908
  17. INSULIN [Concomitant]
     Route: 042
     Dates: start: 20070904, end: 20070908
  18. FUROSEMIDE [Concomitant]
     Route: 042
     Dates: start: 20070904, end: 20070908

REACTIONS (5)
  - CONVULSION [None]
  - DRUG INTERACTION [None]
  - FOAMING AT MOUTH [None]
  - OBSTRUCTIVE AIRWAYS DISORDER [None]
  - TREMOR [None]
